FAERS Safety Report 15188483 (Version 2)
Quarter: 2018Q3

REPORT INFORMATION
  Report Type: Spontaneous
  Country: JP (occurrence: JP)
  Receive Date: 20180724
  Receipt Date: 20180814
  Transmission Date: 20181010
  Serious: Yes (Disabling, Other)
  Sender: FDA-Public Use
  Company Number: JP-AMGEN-JPNSP2018099498

PATIENT
  Age: 59 Year
  Sex: Female

DRUGS (5)
  1. OXYCONTIN [Concomitant]
     Active Substance: OXYCODONE HYDROCHLORIDE
     Indication: METASTASES TO BONE
  2. CELECOX [Concomitant]
     Active Substance: CELECOXIB
     Indication: BREAST CANCER
     Dosage: 100 MG, BID
     Route: 048
  3. OXYCONTIN [Concomitant]
     Active Substance: OXYCODONE HYDROCHLORIDE
     Indication: BREAST CANCER
     Dosage: 20 MG, BID
     Route: 048
  4. CELECOX [Concomitant]
     Active Substance: CELECOXIB
     Indication: METASTASES TO BONE
  5. RANMARK [Suspect]
     Active Substance: DENOSUMAB
     Indication: METASTASES TO BONE
     Dosage: 120 MG, Q4WK
     Route: 058
     Dates: start: 201207, end: 201603

REACTIONS (1)
  - Osteonecrosis of jaw [Not Recovered/Not Resolved]

NARRATIVE: CASE EVENT DATE: 20160412
